FAERS Safety Report 24623343 (Version 1)
Quarter: 2024Q4

REPORT INFORMATION
  Report Type: Other
  Country: IT (occurrence: IT)
  Receive Date: 20241115
  Receipt Date: 20241115
  Transmission Date: 20250115
  Serious: Yes (Hospitalization)
  Sender: MACLEODS
  Company Number: None

PATIENT

DRUGS (1)
  1. LEVOFLOXACIN [Suspect]
     Active Substance: LEVOFLOXACIN
     Indication: Pyrexia
     Route: 042

REACTIONS (11)
  - Hepatic fibrosis [Recovered/Resolved]
  - Fibrosis [Recovered/Resolved]
  - Obesity [Recovered/Resolved]
  - Blood acid phosphatase increased [Recovered/Resolved]
  - Hepatic steatosis [Recovering/Resolving]
  - Liver injury [Recovered/Resolved]
  - Liver injury [Recovering/Resolving]
  - Hepatic necrosis [Recovered/Resolved]
  - Blood alkaline phosphatase increased [Recovered/Resolved]
  - Transaminases increased [Recovered/Resolved]
  - Gamma-glutamyltransferase increased [Recovered/Resolved]
